FAERS Safety Report 7093081-0 (Version None)
Quarter: 2010Q4

REPORT INFORMATION
  Report Type: 
  Country: None (occurrence: None)
  Receive Date: 20101105
  Receipt Date: 20101105
  Transmission Date: 20110411
  Serious: No
  Sender: FDA-Public Use
  Company Number: None

PATIENT
  Age: 62 Year
  Sex: Female

DRUGS (9)
  1. NITROFURANTOIN [Suspect]
  2. SYNTHROID [Concomitant]
  3. LOTREL (AMLODIPINE AND BENAZEPRIL [Concomitant]
  4. ATENOLOL [Concomitant]
  5. TRIAMTERENE [Concomitant]
  6. STEROIDS [Concomitant]
  7. AZITHROMYCIN [Concomitant]
  8. PLAQUENIL [Concomitant]
  9. LOVASTATIN [Concomitant]

REACTIONS (13)
  - ANTINUCLEAR ANTIBODY POSITIVE [None]
  - ASCITES [None]
  - AUTOIMMUNE HEPATITIS [None]
  - GRANULOMA ANNULARE [None]
  - HEPATIC CIRRHOSIS [None]
  - HEPATIC FIBROSIS [None]
  - HEPATITIS ACUTE [None]
  - HEPATOTOXICITY [None]
  - HYPERLIPIDAEMIA [None]
  - INTERNATIONAL NORMALISED RATIO INCREASED [None]
  - OEDEMA PERIPHERAL [None]
  - RASH [None]
  - SPLENOMEGALY [None]
